FAERS Safety Report 5184804-6 (Version None)
Quarter: 2006Q4

REPORT INFORMATION
  Report Type: 
  Country: None (occurrence: None)
  Receive Date: 20061220
  Receipt Date: 20060425
  Transmission Date: 20070319
  Serious: No
  Sender: FDA-Public Use
  Company Number: US-GLAXOSMITHKLINE-A0603203A

PATIENT
  Age: 59 Year
  Sex: Female

DRUGS (2)
  1. NICODERM CQ [Suspect]
     Dates: start: 20060217
  2. NICODERM CQ [Suspect]

REACTIONS (7)
  - ABDOMINAL DISTENSION [None]
  - FAECALOMA [None]
  - FEELING JITTERY [None]
  - INTENTIONAL DRUG MISUSE [None]
  - RESTLESSNESS [None]
  - THINKING ABNORMAL [None]
  - TREMOR [None]
